FAERS Safety Report 10960702 (Version 2)
Quarter: 2015Q2

REPORT INFORMATION
  Report Type: Spontaneous
  Country: US (occurrence: US)
  Receive Date: 20150327
  Receipt Date: 20150402
  Transmission Date: 20150821
  Serious: Yes (Other)
  Sender: FDA-Public Use
  Company Number: US-SA-2015SA038429

PATIENT
  Age: 72 Year
  Sex: Female

DRUGS (1)
  1. AVAPRO [Suspect]
     Active Substance: IRBESARTAN
     Route: 065

REACTIONS (1)
  - Intraocular pressure increased [Unknown]
